FAERS Safety Report 25533265 (Version 1)
Quarter: 2025Q3

REPORT INFORMATION
  Report Type: Report from Study
  Country: AE (occurrence: AE)
  Receive Date: 20250709
  Receipt Date: 20250709
  Transmission Date: 20251020
  Serious: Yes (Disabling)
  Sender: ROCHE
  Company Number: AE-ROCHE-10000328772

PATIENT
  Age: 45 Year
  Sex: Female

DRUGS (1)
  1. OCREVUS [Suspect]
     Active Substance: OCRELIZUMAB
     Indication: Product used for unknown indication
     Route: 065

REACTIONS (9)
  - Asthenia [Unknown]
  - Wheelchair user [Unknown]
  - Pain in extremity [Unknown]
  - Motor dysfunction [Unknown]
  - Muscle spasms [Unknown]
  - Muscle spasticity [Unknown]
  - Erythema [Unknown]
  - Peripheral swelling [Unknown]
  - Fatigue [Unknown]
